FAERS Safety Report 11094218 (Version 2)
Quarter: 2016Q3

REPORT INFORMATION
  Report Type: Spontaneous
  Country: US (occurrence: US)
  Receive Date: 20150506
  Receipt Date: 20160721
  Transmission Date: 20161109
  Serious: No
  Sender: FDA-Public Use
  Company Number: US-PFIZER INC-2015150715

PATIENT
  Sex: Female

DRUGS (1)
  1. CALAN SR [Suspect]
     Active Substance: VERAPAMIL HYDROCHLORIDE
     Indication: TACHYCARDIA PAROXYSMAL
     Dosage: 240 MG, DAILY (IN THE MORNING)

REACTIONS (3)
  - Drug effect decreased [Unknown]
  - Intentional product misuse [Unknown]
  - Extrasystoles [Unknown]
